FAERS Safety Report 20125006 (Version 1)
Quarter: 2021Q4

REPORT INFORMATION
  Report Type: Spontaneous
  Country: BD (occurrence: None)
  Receive Date: 20211129
  Receipt Date: 20211129
  Transmission Date: 20220303
  Serious: Yes (Other)
  Sender: FDA-Public Use
  Company Number: BD-ROCHE-2960293

PATIENT
  Sex: Female

DRUGS (1)
  1. XELODA [Suspect]
     Active Substance: CAPECITABINE
     Indication: Colon cancer
     Dosage: STRENGTH: 500MG, TABLET
     Route: 048

REACTIONS (3)
  - Diabetes mellitus [Unknown]
  - Pain [Unknown]
  - Abdominal pain upper [Unknown]
